FAERS Safety Report 12978364 (Version 1)
Quarter: 2016Q4

REPORT INFORMATION
  Report Type: Spontaneous
  Country: US (occurrence: US)
  Receive Date: 20161128
  Receipt Date: 20161128
  Transmission Date: 20170207
  Serious: No
  Sender: FDA-Public Use
  Company Number: US-PFIZER INC-2016543596

PATIENT
  Age: 45 Year
  Sex: Female

DRUGS (1)
  1. XELJANZ XR [Suspect]
     Active Substance: TOFACITINIB CITRATE
     Dosage: 11 MG, UNK
     Dates: start: 20161114, end: 20161121

REACTIONS (5)
  - Activities of daily living impaired [Unknown]
  - Sputum discoloured [Unknown]
  - Pleuritic pain [Unknown]
  - Chest pain [Unknown]
  - Arthralgia [Unknown]
